FAERS Safety Report 26075241 (Version 1)
Quarter: 2025Q4

REPORT INFORMATION
  Report Type: Other
  Country: US (occurrence: US)
  Receive Date: 20251121
  Receipt Date: 20251121
  Transmission Date: 20260118
  Serious: No
  Sender: VERASTEM
  Company Number: US-VERASTEM-250926US-AFCPK-00639

PATIENT

DRUGS (1)
  1. AVMAPKI FAKZYNJA CO-PACK [Suspect]
     Active Substance: AVUTOMETINIB POTASSIUM\DEFACTINIB HYDROCHLORIDE
     Indication: Ovarian cancer
     Dosage: AVMAPKI 3.2MG ON DAYS 1, 4, 8,11, 15, 18, FAKZYNJA 200MG TWICE DAILY, DAYS 1-21, BOTH IN A 28 DAY CY
     Route: 048
     Dates: start: 20250819

REACTIONS (4)
  - Blood pressure abnormal [Recovered/Resolved]
  - Fatigue [Unknown]
  - Visual impairment [Unknown]
  - Fall [Unknown]

NARRATIVE: CASE EVENT DATE: 20251001
